FAERS Safety Report 5014534-2 (Version None)
Quarter: 2006Q2

REPORT INFORMATION
  Report Type: 
  Country: None (occurrence: None)
  Receive Date: 20060525
  Receipt Date: 20060516
  Transmission Date: 20061013
  Serious: Yes (Hospitalization, Other)
  Sender: FDA-Public Use
  Company Number: HQWYE365516MAY06

PATIENT
  Age: 93 Year
  Sex: Female

DRUGS (9)
  1. PANTOPRAZOLE SODIUM [Suspect]
     Indication: GOUT
     Dosage: 20 MG 1X PER 1 DAY ORAL
     Route: 048
     Dates: start: 20060205, end: 20060309
  2. ALLOPURINOL [Suspect]
     Indication: GOUT
     Dosage: 300 MG 1X PER 1 DAY ORAL
     Route: 048
     Dates: start: 20060205, end: 20060309
  3. COLCHICUM JTL LIQ [Suspect]
     Indication: GOUT
     Dosage: 1 MG 1X PER 1 DAY ORAL
     Route: 048
     Dates: start: 20060205, end: 20060309
  4. METEOSPASMYL (ALVERINE CITRATE/DL-METHIONINE) [Concomitant]
  5. BEDELIX (MONTMORILLONITE) [Concomitant]
  6. LASIX [Concomitant]
  7. SPIRONOLACTONE [Concomitant]
  8. DIGOXIN [Concomitant]
  9. NITROGLYCERIN [Concomitant]

REACTIONS (2)
  - DRUG ERUPTION [None]
  - EOSINOPHILIA [None]
